FAERS Safety Report 14240089 (Version 1)
Quarter: 2017Q4

REPORT INFORMATION
  Report Type: Spontaneous
  Country: US (occurrence: US)
  Receive Date: 20171129
  Receipt Date: 20171129
  Transmission Date: 20180321
  Serious: Yes (Other)
  Sender: FDA-Public Use
  Company Number: None

PATIENT
  Sex: Female

DRUGS (1)
  1. LEVO. THYROID [Suspect]
     Active Substance: LEVOTHYROXINE SODIUM
     Indication: THYROID DISORDER
     Dosage: ?          QUANTITY:1 TABLET(S);?
     Route: 048
     Dates: start: 20100101, end: 20171127

REACTIONS (10)
  - Weight increased [None]
  - Dyspnoea [None]
  - Hypersensitivity [None]
  - Urticaria [None]
  - Product physical issue [None]
  - Product dosage form issue [None]
  - Drug level below therapeutic [None]
  - Product tampering [None]
  - Alopecia [None]
  - Madarosis [None]

NARRATIVE: CASE EVENT DATE: 20171116
